FAERS Safety Report 10221048 (Version 1)
Quarter: 2014Q2

REPORT INFORMATION
  Report Type: Spontaneous
  Country: US (occurrence: None)
  Receive Date: 20140605
  Receipt Date: 20140605
  Transmission Date: 20141212
  Serious: Yes (Hospitalization)
  Sender: FDA-Public Use
  Company Number: None

PATIENT
  Age: 38 Year
  Sex: Female
  Weight: 55.2 kg

DRUGS (1)
  1. ERIBULIN  MESYLATE [Suspect]
     Dosage: CYCLE, DAY 1
     Dates: start: 20140408

REACTIONS (1)
  - Abdominal pain [None]
